FAERS Safety Report 9226393 (Version 2)
Quarter: 2013Q3

REPORT INFORMATION
  Report Type: Report from Study
  Country: DE (occurrence: DE)
  Receive Date: 20130411
  Receipt Date: 20130815
  Transmission Date: 20140515
  Serious: Yes (Other)
  Sender: FDA-Public Use
  Company Number: DE-TEVA-396325GER

PATIENT
  Age: 44 Year
  Sex: Female
  Weight: 58 kg

DRUGS (3)
  1. MYOCET [Suspect]
     Indication: BREAST CANCER
     Route: 042
  2. PACLITAXEL [Suspect]
     Indication: BREAST CANCER
     Route: 042
  3. BEVACIZUMAB [Suspect]
     Indication: BREAST CANCER
     Route: 042

REACTIONS (1)
  - Vaginal ulceration [Recovering/Resolving]
